FAERS Safety Report 18446649 (Version 10)
Quarter: 2021Q2

REPORT INFORMATION
  Report Type: Report from Study
  Country: CO (occurrence: CO)
  Receive Date: 20201030
  Receipt Date: 20210601
  Transmission Date: 20210717
  Serious: Yes (Death, Hospitalization, Disabling, Other)
  Sender: FDA-Public Use
  Company Number: CO-SHIRE-CO202032337

PATIENT
  Age: 10 Year
  Sex: Female
  Weight: 17 kg

DRUGS (2)
  1. HUMAN IMMUNOGLOBULIN; HYALURONIDASE [Suspect]
     Active Substance: HUMAN IMMUNOGLOBULIN G\HYALURONIDASE RECOMBINANT HUMAN
     Dosage: 10 GRAM, MONTHLY
     Route: 058
     Dates: start: 20191101
  2. HUMAN IMMUNOGLOBULIN; HYALURONIDASE [Suspect]
     Active Substance: HUMAN IMMUNOGLOBULIN G\HYALURONIDASE RECOMBINANT HUMAN
     Indication: PRIMARY IMMUNODEFICIENCY SYNDROME
     Dosage: 20 GRAM, 1X A MONTH
     Route: 058
     Dates: start: 20191101

REACTIONS (37)
  - Skin disorder [Unknown]
  - Dry skin [Unknown]
  - Bacterial infection [None]
  - Bloody discharge [None]
  - Snoring [None]
  - Condition aggravated [None]
  - Cardio-respiratory arrest [Fatal]
  - Poor venous access [Unknown]
  - Skin irritation [None]
  - Vomiting [None]
  - Kidney infection [Unknown]
  - Rash pruritic [None]
  - General physical health deterioration [None]
  - Pulse abnormal [None]
  - Gastritis [Unknown]
  - Haemoglobin decreased [Unknown]
  - Hypokinesia [None]
  - Productive cough [None]
  - Weight decreased [None]
  - Hypotension [None]
  - Jaundice [Unknown]
  - Skin exfoliation [Unknown]
  - Purulent discharge [None]
  - Walking disability [None]
  - Seizure [None]
  - Skin discharge [None]
  - Dysstasia [Unknown]
  - Pyrexia [None]
  - Weight increased [None]
  - Malaise [None]
  - Blood pressure increased [Unknown]
  - Hydrocephalus [None]
  - Speech disorder [None]
  - Gait inability [Unknown]
  - Sitting disability [None]
  - Secretion discharge [None]
  - Discouragement [None]

NARRATIVE: CASE EVENT DATE: 20200925
